FAERS Safety Report 7690301-6 (Version None)
Quarter: 2011Q3

REPORT INFORMATION
  Report Type: 
  Country: None (occurrence: None)
  Receive Date: 20110818
  Receipt Date: 20110808
  Transmission Date: 20111222
  Serious: Yes (Hospitalization)
  Sender: FDA-Public Use
  Company Number: US-ELI_LILLY_AND_COMPANY-US201108002927

PATIENT
  Sex: Female
  Weight: 60.771 kg

DRUGS (7)
  1. QUINAPRIL HCL [Concomitant]
     Indication: BLOOD PRESSURE
     Dosage: UNK
  2. ZOCOR [Concomitant]
     Dosage: UNK
  3. PLAVIX [Concomitant]
     Dosage: UNK
  4. ZOLOFT [Concomitant]
     Dosage: UNK
  5. BYETTA [Suspect]
     Indication: TYPE 2 DIABETES MELLITUS
     Dosage: UNK, BID
     Route: 058
  6. BYETTA [Suspect]
     Dosage: 10 UG, BID
     Route: 058
  7. LANTUS [Concomitant]
     Indication: TYPE 2 DIABETES MELLITUS
     Dosage: UNK, EACH EVENING

REACTIONS (5)
  - FALL [None]
  - CEREBROVASCULAR ACCIDENT [None]
  - OFF LABEL USE [None]
  - HEAD INJURY [None]
  - DYSARTHRIA [None]
